FAERS Safety Report 13648079 (Version 1)
Quarter: 2017Q2

REPORT INFORMATION
  Report Type: Spontaneous
  Country: CA (occurrence: CA)
  Receive Date: 20170613
  Receipt Date: 20170613
  Transmission Date: 20170830
  Serious: Yes (Hospitalization, Other)
  Sender: FDA-Public Use
  Company Number: CA-ALLERGAN-1000059687

PATIENT
  Age: 56 Year
  Sex: Female
  Weight: 83.9 kg

DRUGS (3)
  1. SAPHRIS [Suspect]
     Active Substance: ASENAPINE MALEATE
     Indication: SCHIZOPHRENIA
  2. CIPRALEX [Concomitant]
     Active Substance: ESCITALOPRAM OXALATE
     Indication: PRODUCT USED FOR UNKNOWN INDICATION
     Dosage: UNK, UNKNOWN
     Route: 065
  3. SAPHRIS [Suspect]
     Active Substance: ASENAPINE MALEATE
     Indication: DISSOCIATIVE IDENTITY DISORDER
     Dosage: 5 MG, BID
     Route: 060
     Dates: start: 20120301, end: 20120507

REACTIONS (8)
  - Diabetes mellitus [Recovered/Resolved]
  - Confusional state [Recovered/Resolved]
  - Malaise [Recovered/Resolved]
  - Blood glucose increased [Recovered/Resolved]
  - Urinary incontinence [Recovered/Resolved]
  - Diabetic ketoacidosis [Recovered/Resolved]
  - Off label use [Unknown]
  - Unresponsive to stimuli [Recovered/Resolved]

NARRATIVE: CASE EVENT DATE: 201205
